FAERS Safety Report 8267895-5 (Version None)
Quarter: 2012Q2

REPORT INFORMATION
  Report Type: 
  Country: None (occurrence: None)
  Receive Date: 20120409
  Receipt Date: 20120327
  Transmission Date: 20120825
  Serious: Yes (Hospitalization)
  Sender: FDA-Public Use
  Company Number: FR-BRISTOL-MYERS SQUIBB COMPANY-16486508

PATIENT
  Age: 45 Year
  Sex: Male
  Weight: 63 kg

DRUGS (18)
  1. NORVIR [Suspect]
  2. INTELENCE [Concomitant]
  3. MORPHINE SULFATE [Suspect]
     Route: 048
     Dates: start: 20120206, end: 20120215
  4. PREZISTA [Suspect]
  5. BLEOMYCIN SULFATE [Suspect]
     Dates: start: 20120206
  6. DACARBAZINE [Suspect]
     Dates: start: 20120206
  7. VINBLASTINE SULFATE [Suspect]
     Dates: start: 20120206
  8. ISENTRESS [Concomitant]
  9. VALACYCLOVIR HYDROCHLORIDE [Concomitant]
  10. DUSPATALIN [Concomitant]
  11. DEBRIDAT [Concomitant]
  12. MOTILIUM [Concomitant]
  13. ZOFRAN [Suspect]
     Route: 048
     Dates: start: 20120206, end: 20120215
  14. DOXORUBICIN HCL [Suspect]
     Dates: start: 20120206
  15. BACTRIM DS [Concomitant]
  16. SPASFON [Concomitant]
  17. ACETAMINOPHEN AND TRAMADOL HCL [Suspect]
     Dosage: 1DF=37.5MG/325MG
     Route: 048
     Dates: start: 20120206, end: 20120215
  18. CREON [Concomitant]

REACTIONS (4)
  - INTESTINAL OBSTRUCTION [None]
  - AGRANULOCYTOSIS [None]
  - NEUTROPENIA [None]
  - ABDOMINAL PAIN [None]
